FAERS Safety Report 4691430-1 (Version None)
Quarter: 2005Q2

REPORT INFORMATION
  Report Type: 
  Country: None (occurrence: None)
  Receive Date: 20050615
  Receipt Date: 20050531
  Transmission Date: 20051028
  Serious: Yes (Hospitalization, Other)
  Sender: FDA-Public Use
  Company Number: USA-2005-0020113

PATIENT
  Age: 48 Year
  Sex: Female

DRUGS (9)
  1. OXYCONTIN [Suspect]
     Indication: FIBROMYALGIA
     Dosage: ORAL
     Route: 048
  2. BC HEADACHE POWDER (CAFFEINE/SALICYLATE/ASPIRIN) [Suspect]
     Indication: MIGRAINE
     Dosage: ORAL
     Route: 048
     Dates: start: 20010101, end: 20041102
  3. FENTANYL [Suspect]
  4. AMITRIPTYLINE HCL [Concomitant]
  5. CLONAZEPAM [Concomitant]
  6. RANITIDINE [Concomitant]
  7. NARCOTIC [Concomitant]
  8. ESOMEPRAZOLE (ESOMEPRAZOLE) [Concomitant]
  9. DARVOCET-N (DEXTROPROPOXYPHENE NAPSILATE) [Concomitant]

REACTIONS (26)
  - AORTIC DISORDER [None]
  - ATELECTASIS [None]
  - BLOOD CREATINE PHOSPHOKINASE INCREASED [None]
  - BLOOD CREATINE PHOSPHOKINASE MB INCREASED [None]
  - COMA [None]
  - CONFUSIONAL STATE [None]
  - DRUG LEVEL DECREASED [None]
  - EAR HAEMORRHAGE [None]
  - GASTRIC HAEMORRHAGE [None]
  - GASTRITIS [None]
  - HAEMATEMESIS [None]
  - INSOMNIA [None]
  - LETHARGY [None]
  - LOBAR PNEUMONIA [None]
  - LOSS OF CONSCIOUSNESS [None]
  - LUNG INFILTRATION [None]
  - MOUTH HAEMORRHAGE [None]
  - OVERDOSE [None]
  - OXYGEN SATURATION DECREASED [None]
  - PCO2 INCREASED [None]
  - PNEUMONIA ASPIRATION [None]
  - PNEUMONIA PRIMARY ATYPICAL [None]
  - PRODUCTIVE COUGH [None]
  - SINUS TACHYCARDIA [None]
  - WEIGHT DECREASED [None]
  - WHITE BLOOD CELL COUNT INCREASED [None]
